FAERS Safety Report 8172491-4 (Version None)
Quarter: 2012Q1

REPORT INFORMATION
  Report Type: 
  Country: None (occurrence: None)
  Receive Date: 20120227
  Receipt Date: 20120227
  Transmission Date: 20120608
  Serious: Yes (Life-Threatening)
  Sender: FDA-Public Use
  Company Number: None

PATIENT
  Age: 56 Year
  Sex: Male
  Weight: 76.2043 kg

DRUGS (4)
  1. CARVEDILOL [Suspect]
     Indication: HYPERTENSION
     Dosage: ONE PO BID
     Route: 048
     Dates: start: 20070911
  2. CARVEDILOL [Suspect]
     Indication: ARTERIOSCLEROSIS
     Dosage: ONE PO BID
     Route: 048
     Dates: start: 20070911
  3. COREG [Concomitant]
  4. BENICAR [Concomitant]

REACTIONS (2)
  - HEART RATE INCREASED [None]
  - DEVICE MALFUNCTION [None]
